FAERS Safety Report 17953150 (Version 1)
Quarter: 2020Q2

REPORT INFORMATION
  Report Type: Spontaneous
  Country: CA (occurrence: CA)
  Receive Date: 20200627
  Receipt Date: 20200627
  Transmission Date: 20200714
  Serious: Yes (Other)
  Sender: FDA-Public Use
  Company Number: NVSC2020CA179761

PATIENT
  Age: 67 Year
  Sex: Female

DRUGS (3)
  1. ACH CAPECITABINE [Suspect]
     Active Substance: CAPECITABINE
     Indication: RECTAL CANCER
     Dosage: 450 MG, BID
     Route: 048
  2. ACH CAPECITABINE [Suspect]
     Active Substance: CAPECITABINE
     Dosage: 1000 MG, BID
     Route: 048
  3. OXALIPLATIN INJECTION [Suspect]
     Active Substance: OXALIPLATIN
     Indication: RECTAL CANCER
     Dosage: 190 MG, Q3W
     Route: 042

REACTIONS (3)
  - Swollen tongue [Unknown]
  - Dysarthria [Unknown]
  - Limb discomfort [Unknown]
